FAERS Safety Report 20912115 (Version 1)
Quarter: 2022Q2

REPORT INFORMATION
  Report Type: Spontaneous
  Country: US (occurrence: US)
  Receive Date: 20220603
  Receipt Date: 20220603
  Transmission Date: 20220721
  Serious: No
  Sender: FDA-Public Use
  Company Number: US-BRISTOL-MYERS SQUIBB COMPANY-2022-051825

PATIENT
  Age: 59 Year
  Sex: Male
  Weight: 78.925 kg

DRUGS (1)
  1. REVLIMID [Suspect]
     Active Substance: LENALIDOMIDE
     Indication: Plasma cell myeloma
     Dosage: FREQUENCY- EVERY OTHER DAY X 21 DAYS ON AND 7 DAYS OFF.
     Route: 048
     Dates: start: 20200207

REACTIONS (2)
  - Paraesthesia [Not Recovered/Not Resolved]
  - Finger deformity [Not Recovered/Not Resolved]
